FAERS Safety Report 8390420-5 (Version None)
Quarter: 2012Q2

REPORT INFORMATION
  Report Type: 
  Country: None (occurrence: None)
  Receive Date: 20120529
  Receipt Date: 20120518
  Transmission Date: 20120825
  Serious: Yes (Hospitalization)
  Sender: FDA-Public Use
  Company Number: PT-JNJFOC-20120517336

PATIENT
  Age: 38 Year
  Sex: Female

DRUGS (3)
  1. DARUNAVIR HYDRATE [Suspect]
     Indication: HIV INFECTION
     Route: 065
     Dates: start: 20110501
  2. PROTON PUMP INHIBITORS [Concomitant]
     Route: 065
  3. EMTRICITABINE/TENOFOVIR DISOPROXIL FUMARATE [Suspect]
     Indication: HIV INFECTION
     Route: 065

REACTIONS (2)
  - UPPER GASTROINTESTINAL HAEMORRHAGE [None]
  - ANAEMIA [None]
